FAERS Safety Report 7357885-9 (Version None)
Quarter: 2011Q1

REPORT INFORMATION
  Report Type: 
  Country: None (occurrence: None)
  Receive Date: 20110307
  Receipt Date: 20100226
  Transmission Date: 20110831
  Serious: No
  Sender: FDA-Public Use
  Company Number: AEDEU201000066

PATIENT
  Age: 55 Year
  Sex: Male
  Weight: 98 kg

DRUGS (4)
  1. BUDESONIDE [Concomitant]
  2. RAMIPRIL [Concomitant]
  3. FORMOTEROL FUMARATE [Concomitant]
  4. PROLASTIN [Suspect]
     Indication: ALPHA-1 ANTI-TRYPSIN DEFICIENCY
     Dosage: 6 GM; QW; IV
     Route: 042
     Dates: start: 20080821

REACTIONS (2)
  - BLOOD BLISTER [None]
  - OROPHARYNGEAL BLISTERING [None]
